FAERS Safety Report 24433359 (Version 3)
Quarter: 2024Q4

REPORT INFORMATION
  Report Type: Spontaneous
  Country: ES (occurrence: ES)
  Receive Date: 20241014
  Receipt Date: 20241104
  Transmission Date: 20250115
  Serious: Yes (Other)
  Sender: BAYER HEALTHCARE PHARMACEUTICALS INC.
  Company Number: ES-BAYER-2024A145623

PATIENT
  Age: 14 Year
  Sex: Male

DRUGS (2)
  1. LAROTRECTINIB [Suspect]
     Active Substance: LAROTRECTINIB
     Indication: NTRK gene fusion cancer
     Dosage: UNK
     Dates: start: 202311, end: 2024
  2. LAROTRECTINIB [Suspect]
     Active Substance: LAROTRECTINIB
     Indication: Glioma
     Dosage: UNK
     Dates: start: 202401, end: 2024

REACTIONS (3)
  - Glioma [None]
  - Hepatotoxicity [Recovered/Resolved]
  - Hepatotoxicity [None]
